FAERS Safety Report 10555916 (Version 1)
Quarter: 2014Q4

REPORT INFORMATION
  Report Type: Spontaneous
  Country: US (occurrence: US)
  Receive Date: 20141030
  Receipt Date: 20141030
  Transmission Date: 20150529
  Serious: No
  Sender: FDA-Public Use
  Company Number: US-PFIZER INC-2014300144

PATIENT
  Sex: Male

DRUGS (2)
  1. INSPRA [Suspect]
     Active Substance: EPLERENONE
     Indication: CARDIAC FAILURE
     Dosage: 50 MG, UNK
  2. INSPRA [Suspect]
     Active Substance: EPLERENONE
     Indication: HYPERTENSION

REACTIONS (2)
  - Hypotension [Unknown]
  - Fatigue [Unknown]
